FAERS Safety Report 12558395 (Version 1)
Quarter: 2016Q3

REPORT INFORMATION
  Report Type: Spontaneous
  Country: US (occurrence: US)
  Receive Date: 20160714
  Receipt Date: 20160714
  Transmission Date: 20161109
  Serious: No
  Sender: FDA-Public Use
  Company Number: US-009507513-1607USA004309

PATIENT
  Age: 70 Year
  Sex: Female

DRUGS (1)
  1. JANUMET [Suspect]
     Active Substance: METFORMIN HYDROCHLORIDE\SITAGLIPTIN PHOSPHATE
     Indication: TYPE 2 DIABETES MELLITUS
     Dosage: UNK
     Route: 048
     Dates: start: 2014

REACTIONS (8)
  - Peripheral swelling [Unknown]
  - Blood pressure increased [Unknown]
  - Influenza like illness [Unknown]
  - Arthropathy [Unknown]
  - Gait disturbance [Unknown]
  - Nausea [Unknown]
  - Headache [Unknown]
  - Malaise [Unknown]
